FAERS Safety Report 9570489 (Version 1)
Quarter: 2013Q3

REPORT INFORMATION
  Report Type: Spontaneous
  Country: US (occurrence: US)
  Receive Date: 20130930
  Receipt Date: 20130930
  Transmission Date: 20140515
  Serious: No
  Sender: FDA-Public Use
  Company Number: US-AMGEN-USASP2013063684

PATIENT
  Age: 63 Year
  Sex: Male
  Weight: 113.38 kg

DRUGS (9)
  1. ENBREL [Suspect]
     Indication: PRODUCT USED FOR UNKNOWN INDICATION
     Dosage: 50 MG, QWK
     Route: 058
  2. VERAPAMIL [Concomitant]
     Dosage: 100 MG, UNK
  3. LISINOPRIL/HCTZ [Concomitant]
     Dosage: 10-12.5, UNK
  4. PRILOSEC                           /00661201/ [Concomitant]
     Dosage: 20 MG, UNK
  5. UROCIT-K [Concomitant]
     Dosage: 10 UNK, UNK
  6. NEURONTIN [Concomitant]
     Dosage: 300 MG, UNK
  7. TRAMADOL [Concomitant]
     Dosage: 50 MG, UNK
  8. MELOXICAM [Concomitant]
     Dosage: 15 MG, UNK
  9. BABY ASPIRIN [Concomitant]
     Dosage: 81 MG, UNK

REACTIONS (2)
  - Drug effect incomplete [Unknown]
  - Pain in extremity [Unknown]
